FAERS Safety Report 4918200-0 (Version None)
Quarter: 2006Q1

REPORT INFORMATION
  Report Type: 
  Country: None (occurrence: None)
  Receive Date: 20060215
  Receipt Date: 20050202
  Transmission Date: 20060701
  Serious: Yes (Other)
  Sender: FDA-Public Use
  Company Number: 13428

PATIENT
  Age: 10 Month
  Sex: Female

DRUGS (2)
  1. AMIODARONE [Suspect]
     Indication: VENTRICULAR FIBRILLATION
  2. AMIODARONE [Suspect]
     Indication: VENTRICULAR FIBRILLATION

REACTIONS (1)
  - HYPERGLYCAEMIA [None]
